FAERS Safety Report 22637856 (Version 2)
Quarter: 2023Q2

REPORT INFORMATION
  Report Type: Report from Study
  Country: US (occurrence: US)
  Receive Date: 20230626
  Receipt Date: 20230626
  Transmission Date: 20230722
  Serious: Yes (Hospitalization)
  Sender: FDA-Public Use
  Company Number: US-ABBVIE-5300445

PATIENT
  Age: 52 Year
  Sex: Male

DRUGS (2)
  1. HUMIRA [Suspect]
     Active Substance: ADALIMUMAB
     Indication: Uveitis
     Route: 058
  2. HUMIRA [Suspect]
     Active Substance: ADALIMUMAB
     Indication: Ankylosing spondylitis

REACTIONS (6)
  - Intervertebral disc protrusion [Unknown]
  - Ankylosing spondylitis [Unknown]
  - Back injury [Unknown]
  - Feeling hot [Unknown]
  - Contusion [Unknown]
  - Skin swelling [Unknown]

NARRATIVE: CASE EVENT DATE: 20230201
